FAERS Safety Report 10482845 (Version 1)
Quarter: 2014Q3

REPORT INFORMATION
  Report Type: Report from Study
  Country: US (occurrence: US)
  Receive Date: 20140929
  Receipt Date: 20140929
  Transmission Date: 20150326
  Serious: No
  Sender: FDA-Public Use
  Company Number: US-ALEXION-A201002370

PATIENT

DRUGS (1)
  1. SOLIRIS [Suspect]
     Active Substance: ECULIZUMAB
     Indication: PAROXYSMAL NOCTURNAL HAEMOGLOBINURIA

REACTIONS (8)
  - Dry skin [Unknown]
  - Urticaria [Unknown]
  - Asthma [Unknown]
  - Pruritus [Unknown]
  - Fatigue [Unknown]
  - Haemoglobinuria [Unknown]
  - Dyspnoea [Unknown]
  - Snoring [Unknown]
